FAERS Safety Report 5152927-3 (Version None)
Quarter: 2006Q4

REPORT INFORMATION
  Report Type: 
  Country: None (occurrence: None)
  Receive Date: 20061114
  Receipt Date: 20061114
  Transmission Date: 20070319
  Serious: No
  Sender: FDA-Public Use
  Company Number: None

PATIENT
  Age: 42 Year
  Sex: Male

DRUGS (2)
  1. NOVOLOG MIX 70/30 [Suspect]
     Dosage: 10 ML  INJECTION
  2. NOVOLIN 70/30 [Suspect]
     Dosage: 10ML  INJECTION

REACTIONS (3)
  - DRUG DISPENSING ERROR [None]
  - MEDICATION ERROR [None]
  - WRONG DRUG ADMINISTERED [None]
